FAERS Safety Report 4574994-8 (Version None)
Quarter: 2005Q1

REPORT INFORMATION
  Report Type: 
  Country: None (occurrence: None)
  Receive Date: 20050208
  Receipt Date: 20040804
  Transmission Date: 20050727
  Serious: Yes (Hospitalization, Disabling)
  Sender: FDA-Public Use
  Company Number: US-ROCHE-376876

PATIENT
  Age: 24 Year
  Sex: Male
  Weight: 128.8 kg

DRUGS (1)
  1. ACCUTANE [Suspect]
     Indication: ACNE
     Route: 065
     Dates: start: 19850615

REACTIONS (33)
  - ANAL FISSURE [None]
  - ANXIETY [None]
  - APPENDICITIS [None]
  - ATRIOVENTRICULAR BLOCK FIRST DEGREE [None]
  - BENIGN PROSTATIC HYPERPLASIA [None]
  - BLOOD CHOLESTEROL INCREASED [None]
  - COLITIS [None]
  - COLITIS ULCERATIVE [None]
  - COLONIC POLYP [None]
  - CONJUNCTIVITIS [None]
  - DEPRESSION [None]
  - DIZZINESS [None]
  - EOSINOPHIL COUNT DECREASED [None]
  - GASTROINTESTINAL DISORDER [None]
  - HAEMORRHOIDS [None]
  - INTESTINAL HAEMORRHAGE [None]
  - IRRITABLE BOWEL SYNDROME [None]
  - LABYRINTHITIS [None]
  - LYMPHOCYTE COUNT DECREASED [None]
  - MONOCYTE COUNT INCREASED [None]
  - MULTI-ORGAN DISORDER [None]
  - MULTIPLE ALLERGIES [None]
  - NASAL SEPTUM DEVIATION [None]
  - NEUTROPHIL COUNT INCREASED [None]
  - OBESITY [None]
  - PANIC ATTACK [None]
  - PILONIDAL CYST [None]
  - PROCTITIS ULCERATIVE [None]
  - PROSTATITIS [None]
  - SINUSITIS [None]
  - TACHYCARDIA [None]
  - UPPER RESPIRATORY TRACT INFECTION [None]
  - VIRAL UPPER RESPIRATORY TRACT INFECTION [None]
